FAERS Safety Report 18664912 (Version 3)
Quarter: 2021Q1

REPORT INFORMATION
  Report Type: Spontaneous
  Country: JP (occurrence: JP)
  Receive Date: 20201225
  Receipt Date: 20210207
  Transmission Date: 20210419
  Serious: Yes (Life-Threatening, Disabling)
  Sender: FDA-Public Use
  Company Number: JP-JNJFOC-20201237506

PATIENT
  Age: 82 Year
  Sex: Female
  Weight: 36.9 kg

DRUGS (13)
  1. LIMAPROST ALFADEX [Suspect]
     Active Substance: LIMAPROST
     Indication: LUMBAR SPINAL STENOSIS
     Dosage: DAILY DOSE 15 MG
     Route: 048
  2. NAUZELIN [Concomitant]
     Active Substance: DOMPERIDONE
     Dosage: UNK
  3. AZILVA [Concomitant]
     Active Substance: AZILSARTAN KAMEDOXOMIL
     Dosage: UNK
     Dates: start: 20201217
  4. MENESIT [Concomitant]
     Active Substance: CARBIDOPA\LEVODOPA
     Dosage: UNK
  5. DOPACOL [Concomitant]
     Active Substance: CARBIDOPA\LEVODOPA
     Indication: PARKINSON^S DISEASE
     Dosage: DAILY DOSE 800 MG
     Route: 048
  6. XARELTO [Suspect]
     Active Substance: RIVAROXABAN
     Indication: ATRIAL FIBRILLATION
     Dosage: DAILY DOSE 10 MG
     Route: 048
     Dates: end: 20201217
  7. SELEGILINE HYDROCHLORIDE. [Concomitant]
     Active Substance: SELEGILINE HYDROCHLORIDE
     Indication: PARKINSONISM
     Dosage: UNK
  8. TRERIEF [Concomitant]
     Active Substance: ZONISAMIDE
     Dosage: UNK
  9. VASOLAN [ISOXSUPRINE HYDROCHLORIDE] [Concomitant]
     Active Substance: ISOXSUPRINE HYDROCHLORIDE
     Dosage: UNK UNK, PRN
  10. FRESH FROZEN PLASMA [Concomitant]
     Active Substance: HUMAN PLASMA
  11. COMTAN [Concomitant]
     Active Substance: ENTACAPONE
     Indication: PARKINSON^S DISEASE
     Dosage: DAILY DOSE 300 MG
     Route: 048
  12. NOURIAST [Concomitant]
     Active Substance: ISTRADEFYLLINE
     Indication: PARKINSON^S DISEASE
     Dosage: DAILY DOSE 40 MG
     Route: 048
  13. BI SIFROL [Concomitant]
     Active Substance: PRAMIPEXOLE
     Dosage: UNK

REACTIONS (5)
  - Aphasia [Recovered/Resolved with Sequelae]
  - Thalamus haemorrhage [Recovered/Resolved with Sequelae]
  - Facial paralysis [Recovered/Resolved with Sequelae]
  - Hemiplegia [Recovered/Resolved with Sequelae]
  - Bedridden [Unknown]

NARRATIVE: CASE EVENT DATE: 20201217
